FAERS Safety Report 14539412 (Version 2)
Quarter: 2018Q1

REPORT INFORMATION
  Report Type: Spontaneous
  Country: IT (occurrence: IT)
  Receive Date: 20180216
  Receipt Date: 20180223
  Transmission Date: 20180509
  Serious: Yes (Hospitalization)
  Sender: FDA-Public Use
  Company Number: PHHY2018IT023883

PATIENT
  Age: 52 Year
  Sex: Female

DRUGS (3)
  1. OLANZAPINE. [Suspect]
     Active Substance: OLANZAPINE
     Indication: TRISOMY 21
     Dosage: 20 MG, QD
     Route: 048
     Dates: start: 20170101, end: 20170902
  2. DEPAKIN [Suspect]
     Active Substance: VALPROATE SODIUM
     Indication: TRISOMY 21
     Dosage: 600 MG, QD
     Route: 048
     Dates: start: 20170101, end: 20170902
  3. DELORAZEPAM [Suspect]
     Active Substance: DELORAZEPAM
     Indication: TRISOMY 21
     Dosage: 120 GTT, QD
     Route: 048
     Dates: start: 20170101, end: 20170902

REACTIONS (2)
  - Sopor [Unknown]
  - Asthenia [Unknown]

NARRATIVE: CASE EVENT DATE: 20170902
